FAERS Safety Report 13981047 (Version 1)
Quarter: 2017Q3

REPORT INFORMATION
  Report Type: Spontaneous
  Country: TR (occurrence: TR)
  Receive Date: 20170918
  Receipt Date: 20170918
  Transmission Date: 20171128
  Serious: Yes (Death)
  Sender: FDA-Public Use
  Company Number: TR-CIPLA LTD.-2017TR16239

PATIENT

DRUGS (6)
  1. CYCLOPHOSPHAMIDE. [Suspect]
     Active Substance: CYCLOPHOSPHAMIDE
     Indication: HISTIOCYTIC SARCOMA
     Dosage: UNK, ON DAY 1
     Route: 065
  2. DOXORUBICIN [Suspect]
     Active Substance: DOXORUBICIN
     Indication: HISTIOCYTIC SARCOMA
     Dosage: UNK, ON DAY 1
     Route: 065
  3. CARBOPLATIN. [Suspect]
     Active Substance: CARBOPLATIN
     Indication: HISTIOCYTIC SARCOMA
     Dosage: AUC 5, ON DAY 1
     Route: 065
  4. PACLITAXEL. [Suspect]
     Active Substance: PACLITAXEL
     Indication: HISTIOCYTIC SARCOMA
     Dosage: 175 MG/M2, DAY 1
     Route: 065
  5. VINCRISTINE [Suspect]
     Active Substance: VINCRISTINE
     Indication: HISTIOCYTIC SARCOMA
     Dosage: UNK, ON DAY 1
     Route: 065
  6. PREDNISONE. [Suspect]
     Active Substance: PREDNISONE
     Indication: HISTIOCYTIC SARCOMA
     Dosage: UNK, ON DAY 1-5

REACTIONS (1)
  - Disease progression [Fatal]
